FAERS Safety Report 6561927-8 (Version None)
Quarter: 2010Q1

REPORT INFORMATION
  Report Type: 
  Country: None (occurrence: None)
  Receive Date: 20100130
  Receipt Date: 20091110
  Transmission Date: 20100710
  Serious: No
  Sender: FDA-Public Use
  Company Number: US-ABBOTT-09P-163-0573946-00

PATIENT
  Sex: Female
  Weight: 140.74 kg

DRUGS (13)
  1. HUMIRA [Suspect]
     Indication: PSORIATIC ARTHROPATHY
     Route: 058
     Dates: start: 20090401, end: 20090910
  2. HUMIRA [Suspect]
     Indication: RHEUMATOID ARTHRITIS
  3. CEPHASALAZINE [Concomitant]
     Indication: DRUG USE FOR UNKNOWN INDICATION
     Route: 048
  4. DOLOBID [Concomitant]
     Indication: RHEUMATOID ARTHRITIS
  5. EFFEXOR [Concomitant]
     Indication: DEPRESSION
     Route: 048
  6. LISINOPRIL [Concomitant]
     Indication: HYPERTENSION
     Route: 048
  7. LASIX [Concomitant]
     Indication: OEDEMA
     Route: 048
  8. FISH OIL [Concomitant]
     Indication: DRUG USE FOR UNKNOWN INDICATION
     Route: 048
  9. NEURONTIN [Concomitant]
     Indication: DRUG USE FOR UNKNOWN INDICATION
     Route: 048
  10. METHOTREXATE [Concomitant]
     Indication: PSORIATIC ARTHROPATHY
     Route: 048
  11. METHOTREXATE [Concomitant]
     Indication: RHEUMATOID ARTHRITIS
  12. SULFASALAZINE [Concomitant]
     Indication: RHEUMATOID ARTHRITIS
  13. SULFASALAZINE [Concomitant]
     Indication: PSORIATIC ARTHROPATHY

REACTIONS (9)
  - BURSITIS INFECTIVE [None]
  - C-REACTIVE PROTEIN INCREASED [None]
  - CELLULITIS [None]
  - DRUG DOSE OMISSION [None]
  - FALL [None]
  - GAIT DISTURBANCE [None]
  - HEADACHE [None]
  - PSORIASIS [None]
  - VISUAL IMPAIRMENT [None]
